FAERS Safety Report 6716414-0 (Version None)
Quarter: 2010Q2

REPORT INFORMATION
  Report Type: 
  Country: None (occurrence: None)
  Receive Date: 20100507
  Receipt Date: 20100426
  Transmission Date: 20101027
  Serious: Yes (Disabling)
  Sender: FDA-Public Use
  Company Number: US-MYLANLABS-2010S1007349

PATIENT
  Age: 62 Year
  Sex: Male
  Weight: 158.76 kg

DRUGS (23)
  1. DIAZEPAM [Suspect]
     Indication: HEADACHE
     Route: 048
     Dates: start: 20100101, end: 20100101
  2. GUANFACINE HYDROCHLORIDE [Suspect]
     Indication: ATTENTION DEFICIT/HYPERACTIVITY DISORDER
     Route: 048
     Dates: start: 20090101, end: 20090101
  3. GUANFACINE HYDROCHLORIDE [Suspect]
     Route: 048
     Dates: start: 20090101, end: 20090101
  4. GUANFACINE HYDROCHLORIDE [Suspect]
     Route: 048
     Dates: end: 20100101
  5. GUANFACINE HYDROCHLORIDE [Suspect]
     Route: 048
     Dates: start: 20100101, end: 20100201
  6. GUANFACINE HYDROCHLORIDE [Suspect]
     Route: 048
     Dates: start: 20100201, end: 20100101
  7. GUANFACINE HYDROCHLORIDE [Suspect]
     Route: 048
     Dates: start: 20100101, end: 20100101
  8. GUANFACINE HYDROCHLORIDE [Suspect]
     Route: 048
     Dates: start: 20100101
  9. ASPIRIN [Suspect]
     Indication: HEADACHE
     Route: 048
     Dates: start: 20100101, end: 20100101
  10. NARDIL [Concomitant]
  11. LYRICA [Concomitant]
  12. FEXOFENADINE [Concomitant]
  13. FUROSEMIDE [Concomitant]
  14. SPIRONOLACTONE [Concomitant]
  15. BYETTA [Concomitant]
  16. ADVAIR DISKUS 100/50 [Concomitant]
  17. ACCOLATE [Concomitant]
  18. LEVOTHYROXINE SODIUM [Concomitant]
  19. CYTOMEL [Concomitant]
  20. METFORMIN [Concomitant]
  21. GLYBURIDE [Concomitant]
  22. LUVOX [Concomitant]
  23. METANX [Concomitant]

REACTIONS (3)
  - DISTURBANCE IN SOCIAL BEHAVIOUR [None]
  - DRUG INTERACTION [None]
  - HEADACHE [None]
